FAERS Safety Report 5277883-9 (Version None)
Quarter: 2007Q1

REPORT INFORMATION
  Report Type: 
  Country: None (occurrence: None)
  Receive Date: 20070327
  Receipt Date: 20070316
  Transmission Date: 20070707
  Serious: Yes (Hospitalization)
  Sender: FDA-Public Use
  Company Number: US-PFIZER INC-2007021241

PATIENT
  Age: 79 Year
  Sex: Male

DRUGS (1)
  1. NORVASC [Suspect]

REACTIONS (1)
  - ENDOCARDITIS [None]
